FAERS Safety Report 18331394 (Version 2)
Quarter: 2020Q4

REPORT INFORMATION
  Report Type: Spontaneous
  Country: US (occurrence: US)
  Receive Date: 20200930
  Receipt Date: 20201009
  Transmission Date: 20210113
  Serious: Yes (Hospitalization, Other)
  Sender: FDA-Public Use
  Company Number: US-ASTRAZENECA-2020SF25312

PATIENT
  Age: 18640 Day
  Sex: Female

DRUGS (70)
  1. FARXIGA [Suspect]
     Active Substance: DAPAGLIFLOZIN PROPANEDIOL
     Indication: HYPOTENSION
     Route: 048
     Dates: start: 20171208
  2. CLOBETASOL [Concomitant]
     Active Substance: CLOBETASOL
  3. NOVOLOG [Concomitant]
     Active Substance: INSULIN ASPART
  4. HYDROCODONE-ACETAMINOPHEN [Concomitant]
     Active Substance: ACETAMINOPHEN\HYDROCODONE
  5. FAMOTIDINE. [Concomitant]
     Active Substance: FAMOTIDINE
  6. FAMOTIDINE. [Concomitant]
     Active Substance: FAMOTIDINE
  7. PROTONIX [Concomitant]
     Active Substance: PANTOPRAZOLE SODIUM
  8. HYDROMORPHONE [Concomitant]
     Active Substance: HYDROMORPHONE
  9. PAXIL [Concomitant]
     Active Substance: PAROXETINE HYDROCHLORIDE
  10. ONDANSETRON [Concomitant]
     Active Substance: ONDANSETRON
  11. MORPHINE [Concomitant]
     Active Substance: MORPHINE
  12. FARXIGA [Suspect]
     Active Substance: DAPAGLIFLOZIN PROPANEDIOL
     Indication: TYPE 2 DIABETES MELLITUS
     Route: 048
     Dates: start: 20140610, end: 20171208
  13. FARXIGA [Suspect]
     Active Substance: DAPAGLIFLOZIN PROPANEDIOL
     Indication: WEIGHT DECREASED
     Route: 048
     Dates: start: 20171208
  14. MUPIROCIN. [Concomitant]
     Active Substance: MUPIROCIN
  15. DOXYCYCLINE. [Concomitant]
     Active Substance: DOXYCYCLINE
  16. LOVENOX [Concomitant]
     Active Substance: ENOXAPARIN SODIUM
  17. FENTANYL. [Concomitant]
     Active Substance: FENTANYL
  18. SODIUM BICARBONATE. [Concomitant]
     Active Substance: SODIUM BICARBONATE
  19. FARXIGA [Suspect]
     Active Substance: DAPAGLIFLOZIN PROPANEDIOL
     Indication: HYPOTENSION
     Route: 048
     Dates: start: 20141013
  20. ALLOPURINOL. [Concomitant]
     Active Substance: ALLOPURINOL
  21. GABAPENTIN. [Concomitant]
     Active Substance: GABAPENTIN
  22. LANTUS [Concomitant]
     Active Substance: INSULIN GLARGINE
  23. CEPHALEXIN. [Concomitant]
     Active Substance: CEPHALEXIN
  24. SIMVASTATIN. [Concomitant]
     Active Substance: SIMVASTATIN
  25. SIMVASTATIN. [Concomitant]
     Active Substance: SIMVASTATIN
  26. DOXYCYCLINE. [Concomitant]
     Active Substance: DOXYCYCLINE
  27. IBUPROFEN. [Concomitant]
     Active Substance: IBUPROFEN
  28. IPRATROPIUM [Concomitant]
     Active Substance: IPRATROPIUM
  29. NALOXONE [Concomitant]
     Active Substance: NALOXONE
  30. VANCOMYCIN [Concomitant]
     Active Substance: VANCOMYCIN
  31. TRULICITY [Concomitant]
     Active Substance: DULAGLUTIDE
  32. METFORMIN [Concomitant]
     Active Substance: METFORMIN HYDROCHLORIDE
  33. PAROXETINE. [Concomitant]
     Active Substance: PAROXETINE
  34. LISINOPRIL. [Concomitant]
     Active Substance: LISINOPRIL
  35. METOPROLOL. [Concomitant]
     Active Substance: METOPROLOL
  36. METOCLOPRAMIDE. [Concomitant]
     Active Substance: METOCLOPRAMIDE
  37. IBUPROFEN. [Concomitant]
     Active Substance: IBUPROFEN
  38. CIPRODEX [Concomitant]
     Active Substance: CIPROFLOXACIN HYDROCHLORIDE\DEXAMETHASONE
  39. LABETALOL [Concomitant]
     Active Substance: LABETALOL\LABETALOL HYDROCHLORIDE
  40. MEPERIDINE [Concomitant]
     Active Substance: MEPERIDINE
  41. POLYETHYLENE GLYCOL [Concomitant]
     Active Substance: POLYETHYLENE GLYCOLS
  42. FARXIGA [Suspect]
     Active Substance: DAPAGLIFLOZIN PROPANEDIOL
     Indication: WEIGHT DECREASED
     Route: 048
     Dates: start: 20140610, end: 20171208
  43. PRAVASTATIN. [Concomitant]
     Active Substance: PRAVASTATIN
  44. HUMALOG [Concomitant]
     Active Substance: INSULIN LISPRO
  45. AZITHROMYCIN ANHYDROUS. [Concomitant]
     Active Substance: AZITHROMYCIN ANHYDROUS
  46. LORATADINE. [Concomitant]
     Active Substance: LORATADINE
  47. CEFAZOLIN [Concomitant]
     Active Substance: CEFAZOLIN
  48. BENADRYL [Concomitant]
     Active Substance: DIPHENHYDRAMINE HYDROCHLORIDE
  49. ZOFRAN [Concomitant]
     Active Substance: ONDANSETRON HYDROCHLORIDE
  50. PROMETHAZINE [Concomitant]
     Active Substance: PROMETHAZINE HYDROCHLORIDE
  51. FARXIGA [Suspect]
     Active Substance: DAPAGLIFLOZIN PROPANEDIOL
     Indication: HYPOTENSION
     Route: 048
     Dates: start: 20140610, end: 20171208
  52. TRAMADOL. [Concomitant]
     Active Substance: TRAMADOL
  53. GEMFIBROZIL. [Concomitant]
     Active Substance: GEMFIBROZIL
  54. AZITHROMYCIN ANHYDROUS. [Concomitant]
     Active Substance: AZITHROMYCIN ANHYDROUS
  55. HYDRALAZINE [Concomitant]
     Active Substance: HYDRALAZINE HYDROCHLORIDE
  56. NEOMYCIN. [Concomitant]
     Active Substance: NEOMYCIN
  57. FARXIGA [Suspect]
     Active Substance: DAPAGLIFLOZIN PROPANEDIOL
     Indication: WEIGHT DECREASED
     Route: 048
     Dates: start: 20141013
  58. OMEPRAZOLE. [Concomitant]
     Active Substance: OMEPRAZOLE
  59. CYCLOBENZAPRINE. [Concomitant]
     Active Substance: CYCLOBENZAPRINE
  60. BYDUREON [Concomitant]
     Active Substance: EXENATIDE
  61. SUCRALFATE. [Concomitant]
     Active Substance: SUCRALFATE
  62. LORATADINE. [Concomitant]
     Active Substance: LORATADINE
  63. CIPRODEX [Concomitant]
     Active Substance: CIPROFLOXACIN HYDROCHLORIDE\DEXAMETHASONE
  64. OXYCODONE-ACETAMINOPHEN [Concomitant]
     Active Substance: ACETAMINOPHEN\OXYCODONE HYDROCHLORIDE
  65. FARXIGA [Suspect]
     Active Substance: DAPAGLIFLOZIN PROPANEDIOL
     Indication: TYPE 2 DIABETES MELLITUS
     Route: 048
     Dates: start: 20171208
  66. FARXIGA [Suspect]
     Active Substance: DAPAGLIFLOZIN PROPANEDIOL
     Indication: TYPE 2 DIABETES MELLITUS
     Route: 048
     Dates: start: 20141013
  67. ACETAMINOPHEN. [Concomitant]
     Active Substance: ACETAMINOPHEN
  68. CHANTIX [Concomitant]
     Active Substance: VARENICLINE TARTRATE
  69. PREDNISONE. [Concomitant]
     Active Substance: PREDNISONE
  70. HYDROCODONE-ACETAMINOPHEN [Concomitant]
     Active Substance: ACETAMINOPHEN\HYDROCODONE

REACTIONS (5)
  - Sepsis [Unknown]
  - Fournier^s gangrene [Unknown]
  - Abscess [Unknown]
  - Cellulitis [Unknown]
  - Perirectal abscess [Unknown]

NARRATIVE: CASE EVENT DATE: 20150414
